FAERS Safety Report 7739879-4 (Version None)
Quarter: 2011Q3

REPORT INFORMATION
  Report Type: 
  Country: None (occurrence: None)
  Receive Date: 20110909
  Receipt Date: 20110902
  Transmission Date: 20111222
  Serious: Yes (Other)
  Sender: FDA-Public Use
  Company Number: PHHY2011US28069

PATIENT
  Sex: Female

DRUGS (2)
  1. GILENYA [Suspect]
     Indication: RELAPSING-REMITTING MULTIPLE SCLEROSIS
     Dosage: 0.5 MG, QD
     Route: 048
     Dates: start: 20110325
  2. PREDNISONE [Concomitant]
     Dosage: 120 MG, DAILY

REACTIONS (9)
  - HERPES VIRUS INFECTION [None]
  - PYREXIA [None]
  - NASOPHARYNGITIS [None]
  - INSOMNIA [None]
  - PLATELET COUNT DECREASED [None]
  - HYPERSENSITIVITY [None]
  - IDIOPATHIC THROMBOCYTOPENIC PURPURA [None]
  - EYE SWELLING [None]
  - CONTUSION [None]
